FAERS Safety Report 19654372 (Version 1)
Quarter: 2021Q3

REPORT INFORMATION
  Report Type: Spontaneous
  Country: US (occurrence: US)
  Receive Date: 20210804
  Receipt Date: 20210804
  Transmission Date: 20211014
  Serious: Yes (Other)
  Sender: FDA-Public Use
  Company Number: US-NOVOPROD-833289

PATIENT
  Sex: Male

DRUGS (2)
  1. RYBELSUS [Suspect]
     Active Substance: SEMAGLUTIDE
     Dosage: 7 MG
     Route: 048
     Dates: start: 2020, end: 2020
  2. RYBELSUS [Suspect]
     Active Substance: SEMAGLUTIDE
     Indication: TYPE 1 DIABETES MELLITUS
     Dosage: 3 MG
     Route: 048
     Dates: start: 2020, end: 2020

REACTIONS (3)
  - Glomerular filtration rate decreased [Recovered/Resolved]
  - Off label use [Recovered/Resolved]
  - Myocardial infarction [Unknown]

NARRATIVE: CASE EVENT DATE: 2020
